FAERS Safety Report 6961024-3 (Version None)
Quarter: 2010Q3

REPORT INFORMATION
  Report Type: 
  Country: None (occurrence: None)
  Receive Date: 20100901
  Receipt Date: 20100827
  Transmission Date: 20110219
  Serious: Yes (Hospitalization, Other)
  Sender: FDA-Public Use
  Company Number: JP-MERCK-1008USA01050

PATIENT
  Age: 89 Year
  Sex: Male

DRUGS (4)
  1. PEPCID [Suspect]
     Route: 048
  2. UNIPHYL [Concomitant]
     Route: 065
  3. OMEPRAL [Concomitant]
     Route: 065
  4. SALAZOPYRIN [Concomitant]
     Route: 065

REACTIONS (8)
  - CEREBRAL ATROPHY [None]
  - CEREBRAL INFARCTION [None]
  - COLITIS ULCERATIVE [None]
  - CONVULSION [None]
  - EXTRANODAL MARGINAL ZONE B-CELL LYMPHOMA (MALT TYPE) [None]
  - GASTRIC CANCER STAGE II [None]
  - STATUS EPILEPTICUS [None]
  - VITAMIN B6 DECREASED [None]
